FAERS Safety Report 4338391-2 (Version None)
Quarter: 2004Q1

REPORT INFORMATION
  Report Type: 
  Country: None (occurrence: None)
  Receive Date: 20040329
  Receipt Date: 20040219
  Transmission Date: 20041129
  Serious: No
  Sender: FDA-Public Use
  Company Number: USA040259843

PATIENT
  Age: 7 Year
  Sex: Male
  Weight: 59 kg

DRUGS (3)
  1. STRATTERA [Suspect]
     Indication: ATTENTION DEFICIT/HYPERACTIVITY DISORDER
     Dosage: 25 MG/1 DAY
     Dates: start: 20040211
  2. FLOVENT [Concomitant]
  3. SINGULAIR [Concomitant]

REACTIONS (3)
  - BACK PAIN [None]
  - NECK PAIN [None]
  - SLEEP TALKING [None]
